FAERS Safety Report 4618981-X (Version None)
Quarter: 2005Q1

REPORT INFORMATION
  Report Type: 
  Country: None (occurrence: None)
  Receive Date: 20050325
  Receipt Date: 20050316
  Transmission Date: 20050727
  Serious: Yes (Hospitalization)
  Sender: FDA-Public Use
  Company Number: US-ABBOTT-05P-163-0294336-00

PATIENT
  Sex: Female
  Weight: 83.536 kg

DRUGS (15)
  1. HUMIRA [Suspect]
     Indication: RHEUMATOID ARTHRITIS
     Route: 058
     Dates: start: 20041213
  2. CELECOXIB [Concomitant]
     Indication: RHEUMATOID ARTHRITIS
     Dates: start: 19920101
  3. HYDROXYCHLOROQUINE PHOSPHATE [Concomitant]
     Indication: RHEUMATOID ARTHRITIS
     Dates: start: 19920101
  4. VICODIN [Concomitant]
     Indication: PAIN
     Dosage: 750 MG/7.5 MG
     Dates: start: 19990101
  5. DIAZEPAM [Concomitant]
     Indication: ANXIETY
     Dates: start: 19990101
  6. METHOTREXATE [Concomitant]
     Indication: RHEUMATOID ARTHRITIS
     Dosage: 3 TABLETS
     Dates: start: 19990810
  7. HYDROCHLOROTHIAZIDE [Concomitant]
     Indication: OEDEMA
     Dates: start: 20020717
  8. FOLIC ACID [Concomitant]
     Indication: ANAEMIA
     Dates: start: 19990810
  9. ZOCOR [Concomitant]
     Indication: HYPERLIPIDAEMIA
     Dosage: 1/2 TABLET
     Dates: start: 19970101
  10. BUSPIRONE HCL [Concomitant]
     Indication: ANXIETY
     Dates: start: 19990101
  11. ADVAIR DISKUS 100/50 [Concomitant]
     Indication: HYPERSENSITIVITY
     Dosage: 250/50
     Dates: start: 20030101
  12. ADVAIR DISKUS 100/50 [Concomitant]
     Indication: ASTHMA
  13. BEELILITH MAGNESIUM [Concomitant]
     Indication: MINERAL SUPPLEMENTATION
     Dates: start: 19920101
  14. CALCIUM GLUCONATE [Concomitant]
     Indication: MINERAL SUPPLEMENTATION
     Dates: start: 19920101
  15. OCCUVITE [Concomitant]
     Indication: VITAMIN SUPPLEMENTATION
     Dates: start: 19920101

REACTIONS (4)
  - ARTHRALGIA [None]
  - JOINT RANGE OF MOTION DECREASED [None]
  - JOINT SWELLING [None]
  - JOINT WARMTH [None]
